FAERS Safety Report 6166168-4 (Version None)
Quarter: 2009Q2

REPORT INFORMATION
  Report Type: 
  Country: None (occurrence: None)
  Receive Date: 20090422
  Receipt Date: 20090422
  Transmission Date: 20091009
  Serious: No
  Sender: FDA-Public Use
  Company Number: None

PATIENT
  Age: 13 Year
  Sex: Male
  Weight: 49.8957 kg

DRUGS (5)
  1. HALDOL [Suspect]
     Indication: AGGRESSION
     Dosage: 5MG ONCE IM
     Route: 030
     Dates: start: 20090317
  2. ADDERALL XR 20 [Concomitant]
  3. SEROQUEL [Concomitant]
  4. ZOLOFT [Concomitant]
  5. CLONIDINE [Concomitant]

REACTIONS (3)
  - HYPERHIDROSIS [None]
  - MUSCLE RIGIDITY [None]
  - TREMOR [None]
